FAERS Safety Report 17124173 (Version 1)
Quarter: 2019Q4

REPORT INFORMATION
  Report Type: Spontaneous
  Country: US (occurrence: US)
  Receive Date: 20191206
  Receipt Date: 20191206
  Transmission Date: 20200122
  Serious: Yes (Hospitalization)
  Sender: FDA-Public Use
  Company Number: US-SHIRE-US201941100

PATIENT
  Age: 48 Year
  Sex: Male

DRUGS (1)
  1. FIRAZYR [Suspect]
     Active Substance: ICATIBANT ACETATE
     Indication: PRODUCT USED FOR UNKNOWN INDICATION
     Dosage: 30 MILLIGRAM, 1X A MONTH
     Route: 065
     Dates: start: 20190415

REACTIONS (1)
  - Food poisoning [Recovering/Resolving]

NARRATIVE: CASE EVENT DATE: 20191122
